FAERS Safety Report 16435915 (Version 2)
Quarter: 2019Q2

REPORT INFORMATION
  Report Type: Spontaneous
  Country: IT (occurrence: IT)
  Receive Date: 20190614
  Receipt Date: 20190618
  Transmission Date: 20190711
  Serious: Yes (Life-Threatening, Hospitalization, Other)
  Sender: FDA-Public Use
  Company Number: IT-TAKEDA-2019TEU006921

PATIENT
  Age: 1 Month
  Sex: Female

DRUGS (1)
  1. COLCHICINE. [Suspect]
     Active Substance: COLCHICINE
     Indication: INTERCEPTED PRODUCT DISPENSING ERROR
     Dosage: 0.85 MILLIGRAM/KILOGRAM
     Route: 065
     Dates: start: 2000

REACTIONS (11)
  - Cerebral disorder [Unknown]
  - Diarrhoea [Unknown]
  - Intercepted product dispensing error [Unknown]
  - Leukopenia [Unknown]
  - Vomiting [Unknown]
  - Leukocytosis [Unknown]
  - Thrombocytopenia [Unknown]
  - Hypotension [Unknown]
  - Accidental overdose [Unknown]
  - Central nervous system lesion [Unknown]
  - Cardiac failure [Unknown]
